FAERS Safety Report 6507964-0 (Version None)
Quarter: 2009Q4

REPORT INFORMATION
  Report Type: 
  Country: None (occurrence: None)
  Receive Date: 20091221
  Receipt Date: 20091216
  Transmission Date: 20100525
  Serious: Yes (Hospitalization)
  Sender: FDA-Public Use
  Company Number: B0617683A

PATIENT
  Sex: Female

DRUGS (1)
  1. AUGMENTIN '125' [Suspect]
     Indication: TONSILLITIS
     Dosage: 2G PER DAY
     Route: 048
     Dates: start: 20090518, end: 20090518

REACTIONS (3)
  - DYSPNOEA [None]
  - ERYTHEMA [None]
  - FLUSHING [None]
